FAERS Safety Report 24371243 (Version 2)
Quarter: 2024Q4

REPORT INFORMATION
  Report Type: Report from Study
  Country: CA (occurrence: CA)
  Receive Date: 20240927
  Receipt Date: 20241220
  Transmission Date: 20250115
  Serious: Yes (Other)
  Sender: EISAI
  Company Number: CA-Eisai-EC-2024-175155

PATIENT
  Sex: Male
  Weight: 98 kg

DRUGS (14)
  1. LENVIMA [Suspect]
     Active Substance: LENVATINIB
     Indication: Clear cell renal cell carcinoma
     Route: 048
  2. PEMBROLIZUMAB [Suspect]
     Active Substance: PEMBROLIZUMAB
     Indication: Clear cell renal cell carcinoma
     Route: 042
  3. AFINITOR [Suspect]
     Active Substance: EVEROLIMUS
     Indication: Clear cell renal cell carcinoma
     Route: 048
  4. AXITINIB [Suspect]
     Active Substance: AXITINIB
     Indication: Clear cell renal cell carcinoma
     Route: 065
  5. CABOZANTINIB [Suspect]
     Active Substance: CABOZANTINIB
     Indication: Clear cell renal cell carcinoma
     Route: 048
  6. SUNITINIB [Suspect]
     Active Substance: SUNITINIB
     Indication: Clear cell renal cell carcinoma
     Dosage: DOSE AND FREQUENCY UNKNOWN
     Route: 065
  7. AMLODIPINE [Concomitant]
     Active Substance: AMLODIPINE BESYLATE
  8. ENOXAPARIN SODIUM [Concomitant]
     Active Substance: ENOXAPARIN SODIUM
  9. ENTYVIO [Concomitant]
     Active Substance: VEDOLIZUMAB
  10. FLUDROCORTISONE [Concomitant]
     Active Substance: FLUDROCORTISONE
  11. HYDROCORTISONE [Concomitant]
     Active Substance: HYDROCORTISONE
  12. LEVOTHYROXINE SODIUM [Concomitant]
     Active Substance: LEVOTHYROXINE SODIUM
  13. PANTOPRAZOLE [Concomitant]
     Active Substance: PANTOPRAZOLE
  14. ZOPICLONE [Concomitant]
     Active Substance: ZOPICLONE

REACTIONS (1)
  - Malignant neoplasm progression [Unknown]
